FAERS Safety Report 9465026 (Version 1)
Quarter: 2013Q3

REPORT INFORMATION
  Report Type: Spontaneous
  Country: US (occurrence: US)
  Receive Date: 20130819
  Receipt Date: 20130819
  Transmission Date: 20140515
  Serious: No
  Sender: FDA-Public Use
  Company Number: US-BAYER-2013-099348

PATIENT
  Sex: Male

DRUGS (3)
  1. ALEVE LIQUID GELS [Suspect]
     Dosage: UNK
     Route: 048
     Dates: start: 20130811
  2. BAYER GENUINE ASPIRIN ORIGINAL STRENGTH [Suspect]
     Dosage: 1 DF, QD WITH FOOD
     Route: 048
     Dates: start: 201308, end: 201308
  3. ALEVE CAPLET [Suspect]
     Dosage: 3 DF, EVERY 4 HOURS
     Route: 048

REACTIONS (3)
  - Drug effect incomplete [None]
  - Drug effect incomplete [None]
  - Overdose [None]
